FAERS Safety Report 8282596 (Version 3)
Quarter: 2013Q3

REPORT INFORMATION
  Report Type: Report from Study
  Country: JP (occurrence: JP)
  Receive Date: 20111209
  Receipt Date: 20130819
  Transmission Date: 20140515
  Serious: Yes (Death, Life-Threatening, Hospitalization, Other)
  Sender: FDA-Public Use
  Company Number: JP-AMGEN-JPNCT2011056845

PATIENT
  Age: 71 Year
  Sex: Male
  Weight: 60 kg

DRUGS (6)
  1. PANITUMUMAB [Suspect]
     Indication: COLORECTAL CANCER
     Dosage: 380 MG, Q2WK
     Route: 041
     Dates: start: 20110412, end: 20111011
  2. LEVOFOLINATE [Suspect]
     Indication: COLORECTAL CANCER
     Dosage: 280 MG, Q2WK
     Route: 041
     Dates: start: 20110412, end: 20111011
  3. ELPLAT [Suspect]
     Indication: COLORECTAL CANCER
     Dosage: 115 MG, Q2WK
     Route: 041
     Dates: start: 20110412, end: 20111011
  4. 5-FU [Suspect]
     Indication: COLORECTAL CANCER
     Dosage: UNK UNK, Q2WK
     Route: 042
     Dates: start: 20110412, end: 20111011
  5. ALOXI [Concomitant]
     Indication: COLORECTAL CANCER
     Dosage: 0.75 MG, Q2WK
     Route: 041
     Dates: start: 20110412, end: 20111011
  6. DEXART [Concomitant]
     Indication: COLORECTAL CANCER
     Dosage: 8 MG, Q2WK
     Route: 041
     Dates: start: 20110412, end: 20111011

REACTIONS (2)
  - Interstitial lung disease [Fatal]
  - Disseminated intravascular coagulation [Unknown]
